FAERS Safety Report 8785501 (Version 1)
Quarter: 2012Q4

REPORT INFORMATION
  Report Type: Report from Study
  Country: JP (occurrence: JP)
  Receive Date: 20120914
  Receipt Date: 20120914
  Transmission Date: 20130627
  Serious: Yes (Other)
  Sender: FDA-Public Use
  Company Number: JP-VERTEX PHARMACEUTICAL INC.-AE-2012-009544

PATIENT
  Age: 40 Year
  Sex: Male

DRUGS (10)
  1. VX-950 [Suspect]
     Indication: HEPATITIS C
     Dosage: 2250 mg, qd
     Route: 048
     Dates: start: 20120306
  2. VX-950 [Suspect]
     Dosage: 1500 mg, qd
     Route: 048
     Dates: end: 20120529
  3. RIBAVIRIN [Suspect]
     Indication: HEPATITIS C
     Dosage: 800 mg, qd
     Route: 048
     Dates: start: 20120306, end: 20120409
  4. RIBAVIRIN [Suspect]
     Dosage: 600 mg, UNK
     Route: 048
     Dates: start: 20120410
  5. RIBAVIRIN [Suspect]
     Dosage: 800 mg, qd
     Route: 048
     Dates: end: 20120612
  6. RIBAVIRIN [Suspect]
     Dosage: 600 UNK, UNK
     Route: 048
     Dates: start: 20120613, end: 20120821
  7. PEGINTERFERON ALFA-2B [Suspect]
     Indication: HEPATITIS C
     Dosage: 80 ?g/kg, UNK
     Route: 058
     Dates: start: 20120306
  8. PEGINTERFERON ALFA-2B [Suspect]
     Dosage: 80/70 ?g/kg
     Route: 058
     Dates: end: 20120821
  9. LORFENAMIN [Concomitant]
     Dosage: 180 mg, qd
     Route: 048
     Dates: start: 20120529
  10. MUCOSTA [Concomitant]
     Dosage: 300 mg, qd
     Route: 048
     Dates: start: 20120529

REACTIONS (2)
  - White blood cell count decreased [Not Recovered/Not Resolved]
  - Neutrophil count decreased [Recovered/Resolved]
